FAERS Safety Report 10188914 (Version 1)
Quarter: 2014Q2

REPORT INFORMATION
  Report Type: Spontaneous
  Country: US (occurrence: US)
  Receive Date: 20140522
  Receipt Date: 20140522
  Transmission Date: 20141212
  Serious: No
  Sender: FDA-Public Use
  Company Number: US-ZOGENIX, INC.-2014ZX000109

PATIENT
  Sex: Female

DRUGS (3)
  1. ZOHYDRO ER [Suspect]
     Indication: BACK PAIN
     Dates: start: 20140422
  2. NORCO [Concomitant]
     Indication: PAIN
  3. MOBIC [Concomitant]
     Indication: INFLAMMATION

REACTIONS (3)
  - Nausea [Recovered/Resolved]
  - Dizziness [Recovered/Resolved]
  - Therapeutic response decreased [Not Recovered/Not Resolved]
